FAERS Safety Report 24767987 (Version 2)
Quarter: 2024Q4

REPORT INFORMATION
  Report Type: Report from Study
  Country: CO (occurrence: CO)
  Receive Date: 20241223
  Receipt Date: 20241231
  Transmission Date: 20250114
  Serious: Yes (Other)
  Sender: REGENERON
  Company Number: CO-BAYER-2024A180222

PATIENT
  Sex: Male

DRUGS (1)
  1. EYLEA [Suspect]
     Active Substance: AFLIBERCEPT
     Indication: Retinal vein occlusion
     Dosage: UNK; SOLUTION FOR INJECTION; 40 MG/ML
     Route: 031
     Dates: start: 20221117, end: 20230118

REACTIONS (3)
  - Blindness unilateral [Unknown]
  - Eye pain [Not Recovered/Not Resolved]
  - Vision blurred [Unknown]

NARRATIVE: CASE EVENT DATE: 20241128
